FAERS Safety Report 10068360 (Version 1)
Quarter: 2014Q2

REPORT INFORMATION
  Report Type: Spontaneous
  Country: FR (occurrence: FR)
  Receive Date: 20140409
  Receipt Date: 20140409
  Transmission Date: 20141212
  Serious: Yes (Hospitalization, Other)
  Sender: FDA-Public Use
  Company Number: FR-PFIZER INC-2014098462

PATIENT
  Age: 70 Year
  Sex: Male

DRUGS (9)
  1. EUPANTOL [Suspect]
     Dosage: 20 MG, 1X/DAY
     Route: 048
     Dates: start: 20130916
  2. METHOTREXATE [Suspect]
     Dosage: 5800 MG, SINGLE
     Route: 042
     Dates: start: 20130916, end: 20130916
  3. EMEND [Concomitant]
     Dosage: 125 MG, 3X/DAY
     Route: 048
  4. TAHOR [Concomitant]
     Dosage: 40 MG, DAILY
     Route: 048
     Dates: end: 20130918
  5. ISOPTINE [Concomitant]
     Dosage: 240 MG, DAILY
     Route: 048
  6. PRAXILENE [Concomitant]
     Dosage: 200 MG, 2X/DAY
     Route: 048
     Dates: end: 20130918
  7. KARDEGIC [Concomitant]
     Dosage: 75 MG, DAILY
     Route: 048
  8. APROVEL [Concomitant]
     Dosage: 300 MG, DAILY
     Route: 048
     Dates: end: 20130918
  9. SOLUMEDROL [Concomitant]
     Dosage: 40 MG, UNK
     Route: 042

REACTIONS (1)
  - Renal failure acute [Recovered/Resolved]
